FAERS Safety Report 23653308 (Version 1)
Quarter: 2024Q1

REPORT INFORMATION
  Report Type: Spontaneous
  Country: US (occurrence: US)
  Receive Date: 20240320
  Receipt Date: 20240320
  Transmission Date: 20240410
  Serious: No
  Sender: FDA-Public Use
  Company Number: US-BAYER-2024A040426

PATIENT
  Age: 27 Year
  Sex: Male

DRUGS (1)
  1. KOVALTRY [Suspect]
     Active Substance: ANTIHEMOPHILIC FACTOR, HUMAN RECOMBINANT
     Indication: Haemorrhage
     Dosage: 3080 UNITS/3850 UNITS/1540 UNITS/1925 UNITS

REACTIONS (2)
  - Limb injury [None]
  - Ligament sprain [None]

NARRATIVE: CASE EVENT DATE: 20240312
